FAERS Safety Report 8021722-X (Version None)
Quarter: 2012Q1

REPORT INFORMATION
  Report Type: 
  Country: None (occurrence: None)
  Receive Date: 20120104
  Receipt Date: 20111230
  Transmission Date: 20120608
  Serious: Yes (Hospitalization)
  Sender: FDA-Public Use
  Company Number: FR-ABBOTT-11P-056-0887636-00

PATIENT
  Sex: Male

DRUGS (1)
  1. HUMIRA [Suspect]
     Indication: PSORIASIS
     Route: 058
     Dates: start: 20080901, end: 20111001

REACTIONS (7)
  - ARTHRITIS BACTERIAL [None]
  - THROMBOPHLEBITIS [None]
  - ARTHRITIS [None]
  - PYREXIA [None]
  - INFLAMMATION [None]
  - SEPSIS [None]
  - ARTHRALGIA [None]
